FAERS Safety Report 7505490-3 (Version None)
Quarter: 2011Q2

REPORT INFORMATION
  Report Type: 
  Country: None (occurrence: None)
  Receive Date: 20110526
  Receipt Date: 20110518
  Transmission Date: 20111010
  Serious: Yes (Other)
  Sender: FDA-Public Use
  Company Number: US-CUBIST-2011S1000357

PATIENT
  Sex: Male

DRUGS (2)
  1. COLY-MYCIN /00061901/ [Concomitant]
  2. CUBICIN [Suspect]
     Indication: WOUND INFECTION

REACTIONS (1)
  - BLINDNESS [None]
